FAERS Safety Report 21230069 (Version 1)
Quarter: 2022Q3

REPORT INFORMATION
  Report Type: Spontaneous
  Country: US (occurrence: US)
  Receive Date: 20220818
  Receipt Date: 20220818
  Transmission Date: 20221027
  Serious: No
  Sender: FDA-Public Use
  Company Number: US-SA-SAC20220506001207

PATIENT
  Age: 78 Year
  Sex: Female
  Weight: 154 kg

DRUGS (25)
  1. DUPIXENT [Suspect]
     Active Substance: DUPILUMAB
     Indication: Asthma
     Dosage: 200 MG, QOW
     Route: 058
     Dates: start: 20220423
  2. DUPIXENT [Suspect]
     Active Substance: DUPILUMAB
     Indication: Idiopathic urticaria
  3. BLACK CHERRY [Concomitant]
     Active Substance: BLACK CHERRY
     Dosage: UNK
  4. VITAMIN B6 [Concomitant]
     Active Substance: PYRIDOXINE HYDROCHLORIDE
     Dosage: UNK
  5. PRAVASTATIN SODIUM [Concomitant]
     Active Substance: PRAVASTATIN SODIUM
     Dosage: UNK
  6. PANTOPRAZOLE SODIUM [Concomitant]
     Active Substance: PANTOPRAZOLE SODIUM
     Dosage: UNK
  7. METOPROLOL TARTRATE [Concomitant]
     Active Substance: METOPROLOL TARTRATE
     Dosage: UNK
  8. MAGNESIUM OXIDE [Concomitant]
     Active Substance: MAGNESIUM OXIDE
     Dosage: UNK
  9. ZEAXANTHIN [Concomitant]
     Active Substance: ZEAXANTHIN
     Dosage: UNK
  10. LOSARTAN POTASSIUM [Concomitant]
     Active Substance: LOSARTAN POTASSIUM
     Dosage: UNK
  11. GABAPENTIN [Concomitant]
     Active Substance: GABAPENTIN
     Dosage: UNK
  12. FLUTICASONE PROPIONATE [Concomitant]
     Active Substance: FLUTICASONE PROPIONATE
     Dosage: UNK
  13. ALLEGRA ALLERGY [Concomitant]
     Active Substance: FEXOFENADINE HYDROCHLORIDE
     Dosage: UNK
  14. DICYCLOMINE HYDROCHLORIDE [Concomitant]
     Active Substance: DICYCLOMINE HYDROCHLORIDE
     Dosage: UNK
  15. VOLTAREN ARTHRITIS PAIN [Concomitant]
     Active Substance: DICLOFENAC SODIUM
     Dosage: UNK
  16. VITAMIN B12 [Concomitant]
     Active Substance: CYANOCOBALAMIN
     Dosage: UNK
  17. CELEBREX [Concomitant]
     Active Substance: CELECOXIB
     Dosage: UNK
  18. CALCIUM CARBONATE [Concomitant]
     Active Substance: CALCIUM CARBONATE
     Dosage: UNK
  19. AMLODIPINE BESYLATE [Concomitant]
     Active Substance: AMLODIPINE BESYLATE
     Dosage: UNK
  20. ALENDRONATE SODIUM [Concomitant]
     Active Substance: ALENDRONATE SODIUM
     Dosage: UNK
  21. TORSEMIDE [Concomitant]
     Active Substance: TORSEMIDE
     Dosage: UNK
  22. PULMICORT TURBUHALER [Concomitant]
     Active Substance: BUDESONIDE
     Dosage: UNK
  23. ALBUTEROL\IPRATROPIUM [Concomitant]
     Active Substance: ALBUTEROL\IPRATROPIUM
     Dosage: UNK
  24. RETINOL [Concomitant]
     Active Substance: RETINOL
     Dosage: UNK
  25. ARFORMOTEROL TARTRATE [Concomitant]
     Active Substance: ARFORMOTEROL TARTRATE
     Dosage: UNK

REACTIONS (1)
  - Product use in unapproved indication [Unknown]

NARRATIVE: CASE EVENT DATE: 20220423
